FAERS Safety Report 7017554-1 (Version None)
Quarter: 2010Q3

REPORT INFORMATION
  Report Type: 
  Country: None (occurrence: None)
  Receive Date: 20100928
  Receipt Date: 20100726
  Transmission Date: 20110219
  Serious: Yes (Hospitalization)
  Sender: FDA-Public Use
  Company Number: US-MYLANLABS-2010S1013577

PATIENT
  Age: 83 Year
  Sex: Male

DRUGS (8)
  1. NAMENDA [Suspect]
     Indication: DEMENTIA ALZHEIMER'S TYPE
     Route: 048
     Dates: start: 20090601, end: 20090601
  2. NAMENDA [Suspect]
     Route: 048
     Dates: start: 20090601, end: 20100709
  3. HYZAAR [Suspect]
     Indication: HYPERTENSION
     Dates: end: 20100709
  4. HYZAAR [Suspect]
     Dates: end: 20100709
  5. SPIRONOLACTONE [Suspect]
     Indication: HYPERTENSION
     Route: 048
     Dates: end: 20100709
  6. NIACIN [Suspect]
     Indication: DEMENTIA ALZHEIMER'S TYPE
     Dates: start: 20091201, end: 20100701
  7. ARICEPT [Concomitant]
     Indication: DEMENTIA ALZHEIMER'S TYPE
     Dates: start: 20090601
  8. AGGRENOX [Concomitant]
     Indication: TRANSIENT ISCHAEMIC ATTACK

REACTIONS (2)
  - HEPATOTOXICITY [None]
  - RENAL FAILURE ACUTE [None]
